FAERS Safety Report 11097192 (Version 2)
Quarter: 2015Q2

REPORT INFORMATION
  Report Type: Spontaneous
  Country: JP (occurrence: JP)
  Receive Date: 20150507
  Receipt Date: 20150611
  Transmission Date: 20150821
  Serious: Yes (Hospitalization)
  Sender: FDA-Public Use
  Company Number: JP-SA-2015SA058084

PATIENT
  Age: 66 Year
  Sex: Male
  Weight: 54.5 kg

DRUGS (6)
  1. TANATRIL [Concomitant]
     Active Substance: IMIDAPRIL
     Indication: HYPERTENSION
     Dosage: 5
     Route: 048
     Dates: start: 20131104
  2. PLAVIX [Suspect]
     Active Substance: CLOPIDOGREL BISULFATE
     Indication: CEREBRAL INFARCTION
     Route: 065
     Dates: start: 20131104, end: 20131117
  3. FAMOTIDINE. [Concomitant]
     Active Substance: FAMOTIDINE
     Indication: GASTRITIS
     Dosage: 10
     Route: 048
     Dates: start: 20131104
  4. OZAGREL [Suspect]
     Active Substance: OZAGREL
     Indication: CEREBRAL INFARCTION
     Dosage: 80
     Route: 042
     Dates: start: 20131101, end: 20131107
  5. EDARAVONE [Concomitant]
     Active Substance: EDARAVONE
     Indication: CEREBRAL INFARCTION
     Route: 042
     Dates: start: 20131101, end: 20131105
  6. PURSENNID [Concomitant]
     Active Substance: SENNOSIDES A AND B
     Indication: CONSTIPATION
     Dosage: 24
     Route: 048
     Dates: start: 20131106

REACTIONS (5)
  - Dysphagia [Recovering/Resolving]
  - Condition aggravated [Recovering/Resolving]
  - Cerebral infarction [Recovering/Resolving]
  - Intracranial aneurysm [Recovering/Resolving]
  - Hemiplegia [Recovering/Resolving]

NARRATIVE: CASE EVENT DATE: 201311
